FAERS Safety Report 22604210 (Version 2)
Quarter: 2023Q2

REPORT INFORMATION
  Report Type: Spontaneous
  Country: SK (occurrence: None)
  Receive Date: 20230615
  Receipt Date: 20230628
  Transmission Date: 20230722
  Serious: Yes (Other)
  Sender: FDA-Public Use
  Company Number: SK-ROCHE-3367359

PATIENT
  Age: 58 Year
  Sex: Female

DRUGS (19)
  1. RITUXIMAB [Suspect]
     Active Substance: RITUXIMAB
     Indication: Diffuse large B-cell lymphoma
     Route: 065
     Dates: start: 20191031, end: 20200301
  2. RITUXIMAB [Suspect]
     Active Substance: RITUXIMAB
     Route: 065
     Dates: start: 20210323, end: 20210420
  3. RITUXIMAB [Suspect]
     Active Substance: RITUXIMAB
     Dosage: THIRD LINE OF TREATMENT: R-ICE 2 CYCLES IN /JUN/2021
     Route: 065
     Dates: start: 20210513, end: 20210722
  4. RITUXIMAB [Suspect]
     Active Substance: RITUXIMAB
     Dosage: 3 CYCLES OF R-GEMOX
     Route: 065
     Dates: start: 20230208, end: 20230331
  5. CYCLOPHOSPHAMIDE [Suspect]
     Active Substance: CYCLOPHOSPHAMIDE
     Indication: Diffuse large B-cell lymphoma
     Route: 065
     Dates: start: 20191031, end: 20200301
  6. DOXORUBICIN [Suspect]
     Active Substance: DOXORUBICIN
     Indication: Diffuse large B-cell lymphoma
     Route: 065
     Dates: start: 20191031, end: 20200301
  7. VINCRISTINE [Suspect]
     Active Substance: VINCRISTINE
     Indication: Diffuse large B-cell lymphoma
     Route: 065
     Dates: start: 20191031, end: 20200301
  8. PREDNISONE [Suspect]
     Active Substance: PREDNISONE
     Indication: Diffuse large B-cell lymphoma
     Route: 065
     Dates: start: 20191031, end: 20200301
  9. DEXAMETHASONE [Suspect]
     Active Substance: DEXAMETHASONE
     Indication: Diffuse large B-cell lymphoma
     Dosage: SECOND LINE OF TREATMENT: R-DHAP 2 CYCLES (APR/2020)
     Route: 065
     Dates: start: 20210323, end: 20210420
  10. CYTARABINE [Suspect]
     Active Substance: CYTARABINE
     Indication: Diffuse large B-cell lymphoma
     Dosage: SECOND LINE OF TREATMENT: R-DHAP 2 CYCLES (APR/2020)
     Route: 065
     Dates: start: 20210323, end: 20210420
  11. CYTARABINE [Suspect]
     Active Substance: CYTARABINE
     Route: 065
     Dates: start: 20210513, end: 20210722
  12. CISPLATIN [Suspect]
     Active Substance: CISPLATIN
     Indication: Diffuse large B-cell lymphoma
     Dosage: SECOND LINE OF TREATMENT: R-DHAP 2 CYCLES (APR/2020)
     Route: 065
     Dates: start: 20210323, end: 20210420
  13. IFOSFAMIDE [Suspect]
     Active Substance: IFOSFAMIDE
     Indication: Diffuse large B-cell lymphoma
     Dosage: THIRD LINE OF TREATMENT: R-ICE 2 CYCLES IN /JUN/2021
     Route: 065
     Dates: start: 20210513, end: 20210722
  14. CARBOPLATIN [Suspect]
     Active Substance: CARBOPLATIN
     Indication: Diffuse large B-cell lymphoma
     Dosage: THIRD LINE OF TREATMENT: R-ICE 2 CYCLES IN /JUN/2021
     Route: 065
     Dates: start: 20210513, end: 20210722
  15. ETOPOSIDE [Suspect]
     Active Substance: ETOPOSIDE
     Indication: Diffuse large B-cell lymphoma
     Dosage: THIRD LINE OF TREATMENT: R-ICE 2 CYCLES IN /JUN/2021
     Route: 065
     Dates: start: 20210513, end: 20210722
  16. CARMUSTINE [Suspect]
     Active Substance: CARMUSTINE
     Indication: Diffuse large B-cell lymphoma
     Route: 065
     Dates: start: 20210513, end: 20210722
  17. MELPHALAN [Suspect]
     Active Substance: MELPHALAN
     Indication: Diffuse large B-cell lymphoma
     Route: 065
     Dates: start: 20210513, end: 20210722
  18. GEMCITABINE [Suspect]
     Active Substance: GEMCITABINE
     Indication: Diffuse large B-cell lymphoma
     Dosage: 3 CYCLES OF R-GEMOX
     Route: 065
     Dates: start: 20230208, end: 20230331
  19. OXALIPLATIN [Suspect]
     Active Substance: OXALIPLATIN
     Indication: Diffuse large B-cell lymphoma
     Dosage: 3 CYCLES OF R-GEMOX
     Route: 065
     Dates: start: 20230208, end: 20230331

REACTIONS (5)
  - Neuropathy peripheral [Unknown]
  - Disease progression [Unknown]
  - Drug ineffective [Unknown]
  - Therapeutic product effect incomplete [Unknown]
  - Disease recurrence [Unknown]

NARRATIVE: CASE EVENT DATE: 20200401
